FAERS Safety Report 5402060-8 (Version None)
Quarter: 2007Q3

REPORT INFORMATION
  Report Type: 
  Country: None (occurrence: None)
  Receive Date: 20070727
  Receipt Date: 20070717
  Transmission Date: 20080115
  Serious: Yes (Death, Hospitalization)
  Sender: FDA-Public Use
  Company Number: 39205

PATIENT
  Age: 44 Year
  Sex: Male

DRUGS (2)
  1. FLUPHENAZINE DECANOATE [Suspect]
     Indication: SCHIZOPHRENIA
     Dosage: 25MG/IM/TWICE MONTHLY
     Route: 030
  2. HALOPERIDOL LACTATE [Suspect]
     Indication: SCHIZOPHRENIA
     Dosage: 12MG/DAILYP.O.
     Route: 048

REACTIONS (15)
  - BLOOD CHLORIDE DECREASED [None]
  - BRADYPNOEA [None]
  - BRAIN OEDEMA [None]
  - CARDIAC ARREST [None]
  - COMA [None]
  - DISORIENTATION [None]
  - FATIGUE [None]
  - GENERAL PHYSICAL HEALTH DETERIORATION [None]
  - HYPERGLYCAEMIA [None]
  - HYPOTENSION [None]
  - INAPPROPRIATE ANTIDIURETIC HORMONE SECRETION [None]
  - KETONURIA [None]
  - PANCREATIC HAEMORRHAGE [None]
  - PANCREATITIS ACUTE [None]
  - VERTIGO [None]
